FAERS Safety Report 15404502 (Version 1)
Quarter: 2018Q4

REPORT INFORMATION
  Report Type: Spontaneous
  Country: JP (occurrence: JP)
  Receive Date: 20180919
  Receipt Date: 20180919
  Transmission Date: 20190204
  Serious: Yes (Other)
  Sender: FDA-Public Use
  Company Number: JP-IMPAX LABORATORIES, INC-2018-IPXL-02969

PATIENT
  Age: 35 Year
  Sex: Male

DRUGS (2)
  1. DIAPHENYLSULFONE [Suspect]
     Active Substance: DAPSONE
     Indication: LEPROMATOUS LEPROSY
     Dosage: 100 MG, DAILY
     Route: 065
  2. MINOCYCLINE HYDROCHLORIDE. [Suspect]
     Active Substance: MINOCYCLINE HYDROCHLORIDE
     Indication: LEPROMATOUS LEPROSY
     Dosage: 100 MG, DAILY
     Route: 065

REACTIONS (3)
  - Type 1 lepra reaction [Recovered/Resolved]
  - Facial paresis [Recovered/Resolved]
  - Melanocytic naevus [Not Recovered/Not Resolved]
